FAERS Safety Report 6277480-2 (Version None)
Quarter: 2009Q3

REPORT INFORMATION
  Report Type: 
  Country: None (occurrence: None)
  Receive Date: 20090716
  Receipt Date: 20090716
  Transmission Date: 20100115
  Serious: Yes (Other)
  Sender: FDA-Public Use
  Company Number: None

PATIENT
  Sex: Female

DRUGS (1)
  1. TOPIRAMATE [Suspect]
     Dosage: 200 MG Q12H PO
     Route: 048

REACTIONS (3)
  - CONDITION AGGRAVATED [None]
  - MIGRAINE [None]
  - PRODUCT SUBSTITUTION ISSUE [None]
